FAERS Safety Report 6579859-8 (Version None)
Quarter: 2010Q1

REPORT INFORMATION
  Report Type: 
  Country: None (occurrence: None)
  Receive Date: 20100212
  Receipt Date: 20100126
  Transmission Date: 20100710
  Serious: No
  Sender: FDA-Public Use
  Company Number: US-JNJFOC-20100111480

PATIENT
  Sex: Female
  Weight: 63.05 kg

DRUGS (3)
  1. DURAGESIC-100 [Suspect]
     Indication: PAIN
     Route: 062
     Dates: start: 20070101, end: 20100101
  2. DURAGESIC-100 [Suspect]
     Route: 062
     Dates: start: 20100101
  3. UNKNOWN MEDICATION [Concomitant]
     Indication: DRUG USE FOR UNKNOWN INDICATION

REACTIONS (1)
  - DRUG ADMINISTERED AT INAPPROPRIATE SITE [None]
